FAERS Safety Report 24916181 (Version 1)
Quarter: 2025Q1

REPORT INFORMATION
  Report Type: Spontaneous
  Country: JP (occurrence: JP)
  Receive Date: 20250203
  Receipt Date: 20250203
  Transmission Date: 20250409
  Serious: Yes (Other)
  Sender: PFIZER
  Company Number: JP-PFIZER INC-PV202500011389

PATIENT
  Age: 67 Year
  Sex: Male

DRUGS (3)
  1. AZITHROMYCIN [Suspect]
     Active Substance: AZITHROMYCIN
     Indication: Pneumonia legionella
     Route: 042
  2. LASCUFLOXACIN [Concomitant]
     Active Substance: LASCUFLOXACIN
     Indication: Pneumonia legionella
     Route: 042
  3. LASCUFLOXACIN [Concomitant]
     Active Substance: LASCUFLOXACIN
     Route: 042

REACTIONS (1)
  - Drug-induced liver injury [Recovering/Resolving]
